FAERS Safety Report 23393870 (Version 1)
Quarter: 2024Q1

REPORT INFORMATION
  Report Type: Report from Study
  Country: US (occurrence: US)
  Receive Date: 20240111
  Receipt Date: 20240111
  Transmission Date: 20240409
  Serious: Yes (Hospitalization)
  Sender: FDA-Public Use
  Company Number: US-TEVA-VS-3134592

PATIENT
  Age: 64 Year

DRUGS (2)
  1. NITROFURANTOIN [Suspect]
     Active Substance: NITROFURANTOIN
     Indication: Urinary tract infection
     Route: 065
  2. NITROFURANTOIN [Suspect]
     Active Substance: NITROFURANTOIN
     Indication: Urinary tract infection
     Route: 065

REACTIONS (5)
  - Drug-induced liver injury [Unknown]
  - Coagulopathy [Unknown]
  - Hepatitis acute [Unknown]
  - Acute hepatic failure [Unknown]
  - Hepatic necrosis [Unknown]
